FAERS Safety Report 5310813-X (Version None)
Quarter: 2007Q2

REPORT INFORMATION
  Report Type: 
  Country: None (occurrence: None)
  Receive Date: 20070428
  Receipt Date: 20070419
  Transmission Date: 20071010
  Serious: Yes (Other)
  Sender: FDA-Public Use
  Company Number: US-PFIZER INC-2007006869

PATIENT
  Sex: Female
  Weight: 62.6 kg

DRUGS (4)
  1. CHANTIX [Suspect]
     Indication: SMOKING CESSATION THERAPY
  2. TYLENOL [Concomitant]
  3. PREMARIN [Concomitant]
  4. ASPIRIN [Concomitant]

REACTIONS (2)
  - HYPERTENSION [None]
  - LABILE BLOOD PRESSURE [None]
